FAERS Safety Report 5205802-X (Version None)
Quarter: 2007Q1

REPORT INFORMATION
  Report Type: 
  Country: None (occurrence: None)
  Receive Date: 20070108
  Receipt Date: 20070108
  Transmission Date: 20070707
  Serious: Yes (Death)
  Sender: FDA-Public Use
  Company Number: None

PATIENT
  Age: 50 Year
  Sex: Male
  Weight: 48 kg

DRUGS (4)
  1. EMTRICITABINE [Suspect]
     Indication: HIV INFECTION
     Dosage: 200 MG QHS PO
     Route: 048
     Dates: start: 20061006, end: 20061113
  2. TENOFOVIR [Suspect]
     Indication: HIV INFECTION
     Dosage: 300 MG QHS PO
     Route: 048
     Dates: start: 20061006, end: 20061113
  3. EFAVIRENZ [Suspect]
     Indication: HIV INFECTION
     Dosage: 600 MG QHS PO
     Route: 048
     Dates: start: 20061006, end: 20061010
  4. NEVIRAPINE [Suspect]
     Indication: HIV INFECTION
     Dosage: 200 MG BID PO
     Route: 048
     Dates: start: 20061020, end: 20061113

REACTIONS (3)
  - PALPITATIONS [None]
  - PSYCHOTIC DISORDER [None]
  - STEVENS-JOHNSON SYNDROME [None]
